FAERS Safety Report 8480356-3 (Version None)
Quarter: 2012Q3

REPORT INFORMATION
  Report Type: 
  Country: None (occurrence: None)
  Receive Date: 20120701
  Receipt Date: 20120619
  Transmission Date: 20120928
  Serious: Yes (Other)
  Sender: FDA-Public Use
  Company Number: DE-ELI_LILLY_AND_COMPANY-DE201206006349

PATIENT
  Age: 45 Year
  Sex: Male

DRUGS (1)
  1. OLANZAPINE [Suspect]
     Dosage: UNK, UNKNOWN
     Route: 030

REACTIONS (5)
  - TREMOR [None]
  - HYPOTENSION [None]
  - SOMNOLENCE [None]
  - GAIT DISTURBANCE [None]
  - FEELING ABNORMAL [None]
